FAERS Safety Report 6108664-1 (Version None)
Quarter: 2009Q1

REPORT INFORMATION
  Report Type: 
  Country: None (occurrence: None)
  Receive Date: 20090305
  Receipt Date: 20090218
  Transmission Date: 20090719
  Serious: Yes (Other)
  Sender: FDA-Public Use
  Company Number: 09GB000025

PATIENT
  Sex: Female

DRUGS (1)
  1. IBUPROFEN [Suspect]

REACTIONS (1)
  - ANGIOEDEMA [None]
